FAERS Safety Report 7761023-8 (Version None)
Quarter: 2011Q3

REPORT INFORMATION
  Report Type: 
  Country: None (occurrence: None)
  Receive Date: 20110920
  Receipt Date: 20110909
  Transmission Date: 20111222
  Serious: Yes (Death, Hospitalization)
  Sender: FDA-Public Use
  Company Number: FR-ALVOGEN-CIP11000265

PATIENT
  Sex: Male
  Weight: 56 kg

DRUGS (9)
  1. DONORMYL                           /00334102/ [Concomitant]
     Route: 065
  2. ACTONEL [Concomitant]
     Route: 065
  3. PANTOPRAZOLE [Concomitant]
     Route: 065
  4. ASPIRIN [Concomitant]
     Route: 065
  5. CALCIT-S [Concomitant]
     Route: 065
  6. ATACAND [Concomitant]
     Route: 065
  7. FURADANTIN [Suspect]
     Indication: URINARY TRACT INFECTION
     Dosage: 100 MG THREE TIMES DAILY
     Route: 048
     Dates: start: 20101122, end: 20101201
  8. TRIVASTAL                          /00397201/ [Concomitant]
     Route: 065
  9. MOVICOL /06309501/ [Concomitant]
     Route: 065

REACTIONS (5)
  - ACUTE RESPIRATORY DISTRESS SYNDROME [None]
  - INTERSTITIAL LUNG DISEASE [None]
  - RASH [None]
  - DYSPNOEA [None]
  - SEPTIC SHOCK [None]
